FAERS Safety Report 11146243 (Version 1)
Quarter: 2015Q2

REPORT INFORMATION
  Report Type: Report from Study
  Country: AU (occurrence: AU)
  Receive Date: 20150528
  Receipt Date: 20150528
  Transmission Date: 20150821
  Serious: Yes (Hospitalization, Other)
  Sender: FDA-Public Use
  Company Number: AU-SA-2015SA071297

PATIENT
  Age: 34 Year
  Sex: Female

DRUGS (5)
  1. TRAMADOL HYDROCHLORIDE. [Concomitant]
     Active Substance: TRAMADOL HYDROCHLORIDE
  2. AUBAGIO [Suspect]
     Active Substance: TERIFLUNOMIDE
     Route: 048
     Dates: start: 20150413, end: 20150507
  3. VOLTAREN [Concomitant]
     Active Substance: DICLOFENAC SODIUM
  4. IMPLANON [Concomitant]
     Active Substance: ETONOGESTREL
  5. LANZOPRAN [Concomitant]

REACTIONS (4)
  - Malaise [Unknown]
  - Arthropod bite [Unknown]
  - Suicidal ideation [Recovering/Resolving]
  - Unevaluable event [Unknown]

NARRATIVE: CASE EVENT DATE: 2015
